FAERS Safety Report 7732214-7 (Version None)
Quarter: 2011Q3

REPORT INFORMATION
  Report Type: 
  Country: None (occurrence: None)
  Receive Date: 20110906
  Receipt Date: 20110825
  Transmission Date: 20111222
  Serious: Yes (Other)
  Sender: FDA-Public Use
  Company Number: US-ASTRAZENECA-2011SE51356

PATIENT
  Sex: Female

DRUGS (2)
  1. MORPHINE [Suspect]
     Route: 065
  2. SEROQUEL [Suspect]
     Route: 048

REACTIONS (5)
  - OVERDOSE [None]
  - DIZZINESS [None]
  - DRUG WITHDRAWAL SYNDROME [None]
  - NEOPLASM MALIGNANT [None]
  - CARDIAC VALVE DISEASE [None]
